FAERS Safety Report 7081053-1 (Version None)
Quarter: 2010Q4

REPORT INFORMATION
  Report Type: 
  Country: None (occurrence: None)
  Receive Date: 20101103
  Receipt Date: 20101027
  Transmission Date: 20110411
  Serious: Yes (Hospitalization, Other)
  Sender: FDA-Public Use
  Company Number: DK-ROCHE-730630

PATIENT
  Sex: Female
  Weight: 46 kg

DRUGS (3)
  1. ROACTEMRA [Suspect]
     Route: 042
     Dates: start: 20100810, end: 20100810
  2. METHOTREXATE [Concomitant]
     Route: 048
     Dates: start: 20080101
  3. PREDNISONE [Concomitant]
     Dosage: INTERMITTANT SINCE DIAGNOSED.
     Route: 048
     Dates: start: 20081201

REACTIONS (6)
  - FACE OEDEMA [None]
  - LEUKOCYTOSIS [None]
  - OEDEMA [None]
  - PYREXIA [None]
  - RASH [None]
  - SKIN INFECTION [None]
